FAERS Safety Report 25220285 (Version 1)
Quarter: 2025Q2

REPORT INFORMATION
  Report Type: Spontaneous
  Country: US (occurrence: US)
  Receive Date: 20250421
  Receipt Date: 20250421
  Transmission Date: 20250716
  Serious: No
  Sender: UROGEN PHARMA
  Company Number: US-UROGEN PHARMA LTD.-2025-UGN-000028

PATIENT

DRUGS (5)
  1. JELMYTO [Suspect]
     Active Substance: MITOMYCIN
     Indication: Product used for unknown indication
     Route: 065
     Dates: start: 20250113, end: 20250113
  2. JELMYTO [Suspect]
     Active Substance: MITOMYCIN
     Route: 065
     Dates: start: 20250127, end: 20250127
  3. JELMYTO [Suspect]
     Active Substance: MITOMYCIN
     Route: 065
  4. JELMYTO [Suspect]
     Active Substance: MITOMYCIN
     Route: 065
  5. JELMYTO [Suspect]
     Active Substance: MITOMYCIN
     Route: 065
     Dates: start: 20250224, end: 20250224

REACTIONS (2)
  - Dyspnoea [Recovered/Resolved]
  - Asthenia [Recovered/Resolved]

NARRATIVE: CASE EVENT DATE: 20250224
